FAERS Safety Report 16758107 (Version 2)
Quarter: 2019Q3

REPORT INFORMATION
  Report Type: Spontaneous
  Country: US (occurrence: US)
  Receive Date: 20190830
  Receipt Date: 20190920
  Transmission Date: 20191005
  Serious: Yes (Hospitalization)
  Sender: FDA-Public Use
  Company Number: US-KARYOPHARM THERAPEUTICS, INC.-2019KPT000449

PATIENT

DRUGS (1)
  1. XPOVIO [Suspect]
     Active Substance: SELINEXOR
     Indication: PLASMA CELL MYELOMA
     Dosage: 80 MG, 2X/WEEK
     Route: 048
     Dates: start: 20190812, end: 20190814

REACTIONS (9)
  - Weight decreased [Unknown]
  - Muscular weakness [Recovering/Resolving]
  - Fall [Recovered/Resolved]
  - Decreased appetite [Not Recovered/Not Resolved]
  - Anaemia [Unknown]
  - Nausea [Recovered/Resolved]
  - Renal impairment [Unknown]
  - Dehydration [Unknown]
  - Fatigue [Not Recovered/Not Resolved]

NARRATIVE: CASE EVENT DATE: 20190805
